FAERS Safety Report 8398050-6 (Version None)
Quarter: 2012Q2

REPORT INFORMATION
  Report Type: 
  Country: None (occurrence: None)
  Receive Date: 20120531
  Receipt Date: 20120522
  Transmission Date: 20120825
  Serious: Yes (Other)
  Sender: FDA-Public Use
  Company Number: US-TEVA-339803USA

PATIENT
  Sex: Male
  Weight: 143.01 kg

DRUGS (10)
  1. METOPROLOL TARTRATE [Concomitant]
     Indication: BLOOD PRESSURE
     Route: 048
  2. PROVIGIL [Suspect]
     Indication: SLEEP APNOEA SYNDROME
     Dosage: PRN
     Route: 048
     Dates: start: 20090101
  3. FUROSEMIDE [Concomitant]
     Dosage: 80 MILLIGRAM;
     Route: 048
  4. CYCLOBENZAPRINE [Concomitant]
     Dosage: PRN
     Route: 048
  5. OMEPRAZOLE [Concomitant]
     Route: 048
  6. LEVOTHYROXINE SODIUM [Concomitant]
     Indication: THYROID DISORDER
     Dosage: 25 MICROGRAM;
     Route: 048
  7. ROPINIROLE [Concomitant]
     Indication: RESTLESS LEGS SYNDROME
     Route: 048
  8. TRAMADOL HCL [Concomitant]
     Indication: PAIN
     Dosage: PRN
     Route: 048
  9. WARFARIN SODIUM [Concomitant]
     Dosage: VARIES - 40 MG
     Route: 048
  10. PERCOCET [Concomitant]
     Indication: PAIN
     Dosage: 5/500 MG
     Route: 048

REACTIONS (6)
  - DRUG EFFECT INCREASED [None]
  - PULMONARY EMBOLISM [None]
  - SOMNOLENCE [None]
  - FATIGUE [None]
  - DISCOMFORT [None]
  - FEELING ABNORMAL [None]
